FAERS Safety Report 9086987 (Version 1)
Quarter: 2013Q1

REPORT INFORMATION
  Report Type: Spontaneous
  Country: US (occurrence: US)
  Receive Date: 20130201
  Receipt Date: 20130201
  Transmission Date: 20140127
  Serious: No
  Sender: FDA-Public Use
  Company Number: US-ABBOTT-12P-163-1018684-00

PATIENT
  Age: 12 Year
  Sex: Male
  Weight: 31.78 kg

DRUGS (2)
  1. HUMIRA [Suspect]
     Indication: JUVENILE IDIOPATHIC ARTHRITIS
     Dates: start: 2010, end: 2011
  2. ALEVE [Concomitant]
     Indication: PAIN

REACTIONS (1)
  - Bone pain [Not Recovered/Not Resolved]
